FAERS Safety Report 7729982-7 (Version None)
Quarter: 2011Q3

REPORT INFORMATION
  Report Type: 
  Country: None (occurrence: None)
  Receive Date: 20110906
  Receipt Date: 20110826
  Transmission Date: 20111222
  Serious: Yes (Other)
  Sender: FDA-Public Use
  Company Number: JP-ROCHE-800195

PATIENT
  Sex: Female
  Weight: 8.3 kg

DRUGS (1)
  1. OSELTAMIVIR [Suspect]
     Route: 048
     Dates: start: 20100308, end: 20100312

REACTIONS (1)
  - STRABISMUS [None]
